FAERS Safety Report 13098703 (Version 1)
Quarter: 2017Q1

REPORT INFORMATION
  Report Type: Spontaneous
  Country: ES (occurrence: ES)
  Receive Date: 20170109
  Receipt Date: 20170109
  Transmission Date: 20170428
  Serious: Yes (Other)
  Sender: FDA-Public Use
  Company Number: ES-GUERBET LLC-1061821

PATIENT
  Sex: Female

DRUGS (2)
  1. DOTAREM [Suspect]
     Active Substance: GADOTERATE MEGLUMINE
     Indication: ARTHROSCOPY
     Dates: start: 20161228, end: 20161228
  2. LIDOCAINE. [Suspect]
     Active Substance: LIDOCAINE
     Dates: start: 20161228, end: 20161228

REACTIONS (4)
  - Off label use [Recovered/Resolved]
  - Paraesthesia oral [Recovered/Resolved]
  - Respiratory distress [Recovered/Resolved]
  - Anxiety [Recovered/Resolved]

NARRATIVE: CASE EVENT DATE: 20161228
